FAERS Safety Report 6055260-0 (Version None)
Quarter: 2009Q1

REPORT INFORMATION
  Report Type: 
  Country: None (occurrence: None)
  Receive Date: 20090122
  Receipt Date: 20090106
  Transmission Date: 20090719
  Serious: Yes (Death)
  Sender: FDA-Public Use
  Company Number: IMP_04122_2009

PATIENT
  Age: 16 Month
  Sex: Male

DRUGS (1)
  1. BUPROPION HCL [Suspect]
     Indication: DRUG USE FOR UNKNOWN INDICATION
     Dosage: 12 DF 1X ORAL
     Route: 048

REACTIONS (4)
  - ACCIDENTAL DRUG INTAKE BY CHILD [None]
  - CARDIO-RESPIRATORY ARREST [None]
  - CONVULSION [None]
  - DRUG TOXICITY [None]
